FAERS Safety Report 21175090 (Version 2)
Quarter: 2022Q3

REPORT INFORMATION
  Report Type: Report from Study
  Country: DE (occurrence: None)
  Receive Date: 20220805
  Receipt Date: 20220826
  Transmission Date: 20221027
  Serious: Yes (Hospitalization)
  Sender: FDA-Public Use
  Company Number: DE-ROCHE-3150252

PATIENT
  Age: 53 Year
  Sex: Female
  Weight: 87 kg

DRUGS (14)
  1. ATEZOLIZUMAB [Suspect]
     Active Substance: ATEZOLIZUMAB
     Indication: Triple negative breast cancer
     Dosage: ON 21/JUN/2022 SHE RECEIVED THE MOST RECENT DOSE OF ATEZOLIZUMAB  PRIOR TO AE/SAE
     Route: 041
     Dates: start: 20220422
  2. PACLITAXEL [Suspect]
     Active Substance: PACLITAXEL
     Indication: Triple negative breast cancer
     Dosage: ON 28/JUN/2022,  SHE RECEIVED THE MOST RECENT DOSE OF PACLITAXEL PRIOR TO AE/SAE
     Route: 042
     Dates: start: 20220506
  3. CARBOPLATIN [Suspect]
     Active Substance: CARBOPLATIN
     Indication: Triple negative breast cancer
     Dosage: ON 28/JUN/2022 SHE RECEIVED THE MOST RECENT DOSE OF CARBOPLATIN PRIOR TO AE/SAE
     Route: 042
     Dates: start: 20220506
  4. METFORMIN [Concomitant]
     Active Substance: METFORMIN HYDROCHLORIDE
     Dates: start: 201804, end: 20220607
  5. FILGRASTIM [Concomitant]
     Active Substance: FILGRASTIM
     Dosage: 30000000 IE
     Dates: start: 20220518
  6. FILGRASTIM [Concomitant]
     Active Substance: FILGRASTIM
     Dosage: 30000000 IE
     Dates: start: 20220527, end: 20220528
  7. SELENIUM [Concomitant]
     Active Substance: SELENIUM
     Dates: start: 20220518
  8. PREDNISOLONE [Concomitant]
     Active Substance: PREDNISOLONE
     Dates: start: 20220628, end: 20220628
  9. DAPAGLIFLOZIN [Concomitant]
     Active Substance: DAPAGLIFLOZIN
     Dates: start: 20220607
  10. DEXAMETHASONE [Concomitant]
     Active Substance: DEXAMETHASONE
     Dosage: 8 MG AS NEEDED
     Dates: start: 20220506
  11. DIMETHINDENE [Concomitant]
     Active Substance: DIMETHINDENE
     Dates: start: 20220506
  12. CIMETIDINE [Concomitant]
     Active Substance: CIMETIDINE
     Dates: start: 20220506
  13. GRANISETRON [Concomitant]
     Active Substance: GRANISETRON
  14. ONDANSETRON [Concomitant]
     Active Substance: ONDANSETRON
     Dates: start: 20220506

REACTIONS (1)
  - Acute kidney injury [Recovered/Resolved]

NARRATIVE: CASE EVENT DATE: 20220628
